FAERS Safety Report 10158592 (Version 1)
Quarter: 2014Q2

REPORT INFORMATION
  Report Type: Spontaneous
  Country: US (occurrence: US)
  Receive Date: 20140508
  Receipt Date: 20140508
  Transmission Date: 20141212
  Serious: Yes (Other)
  Sender: FDA-Public Use
  Company Number: US-AMGEN-USASP2014032941

PATIENT
  Age: 43 Year
  Sex: Male

DRUGS (1)
  1. ENBREL [Suspect]
     Indication: ARTHRITIS
     Dosage: 50 MG, QWK
     Route: 065
     Dates: end: 20140424

REACTIONS (14)
  - Autoimmune thyroiditis [Unknown]
  - Ulcer [Not Recovered/Not Resolved]
  - Eye swelling [Not Recovered/Not Resolved]
  - Oral fungal infection [Not Recovered/Not Resolved]
  - Genital infection fungal [Not Recovered/Not Resolved]
  - Tinea pedis [Not Recovered/Not Resolved]
  - Candida infection [Not Recovered/Not Resolved]
  - Visual impairment [Not Recovered/Not Resolved]
  - Skin disorder [Not Recovered/Not Resolved]
  - Discomfort [Not Recovered/Not Resolved]
  - Impaired healing [Not Recovered/Not Resolved]
  - Chronic sinusitis [Unknown]
  - Infection [Not Recovered/Not Resolved]
  - Pain [Not Recovered/Not Resolved]
